FAERS Safety Report 18193541 (Version 1)
Quarter: 2020Q3

REPORT INFORMATION
  Report Type: Spontaneous
  Country: FR (occurrence: FR)
  Receive Date: 20200825
  Receipt Date: 20200825
  Transmission Date: 20201103
  Serious: Yes (Hospitalization, Other)
  Sender: FDA-Public Use
  Company Number: FR-PFIZER INC-2020325246

PATIENT
  Age: 2 Month
  Sex: Female
  Weight: 5 kg

DRUGS (2)
  1. AMIKACIN. [Concomitant]
     Active Substance: AMIKACIN
     Indication: SEPSIS
     Dosage: 30 MG/KG
     Route: 042
     Dates: start: 20200711
  2. TAZOCILLINE [Suspect]
     Active Substance: PIPERACILLIN SODIUM\TAZOBACTAM SODIUM
     Indication: SEPSIS
     Dosage: 300 MG/KG (FREQ:1 H;)
     Route: 042

REACTIONS (4)
  - Incorrect product administration duration [Unknown]
  - Off label use [Unknown]
  - Seizure [Recovered/Resolved]
  - Product use issue [Unknown]

NARRATIVE: CASE EVENT DATE: 20200711
